FAERS Safety Report 20741826 (Version 1)
Quarter: 2022Q2

REPORT INFORMATION
  Report Type: Spontaneous
  Country: US (occurrence: None)
  Receive Date: 20220423
  Receipt Date: 20220423
  Transmission Date: 20220720
  Serious: No
  Sender: FDA-Public Use
  Company Number: 2022A149475

PATIENT
  Sex: Female

DRUGS (1)
  1. PULMICORT FLEXHALER [Suspect]
     Active Substance: BUDESONIDE
     Indication: Asthma
     Dosage: 180 MCG., 2 PUFFS TWICE A DAY FOR
     Route: 055

REACTIONS (2)
  - Visual impairment [Not Recovered/Not Resolved]
  - Device use issue [Not Recovered/Not Resolved]
